FAERS Safety Report 11260945 (Version 2)
Quarter: 2015Q3

REPORT INFORMATION
  Report Type: Spontaneous
  Country: CH (occurrence: SE)
  Receive Date: 20150710
  Receipt Date: 20150730
  Transmission Date: 20151125
  Serious: Yes (Hospitalization)
  Sender: FDA-Public Use
  Company Number: CH-LPDUSPRD-20150530

PATIENT
  Age: 46 Year
  Sex: Female

DRUGS (8)
  1. FERINJECT [Suspect]
     Active Substance: FERRIC CARBOXYMALTOSE
     Dosage: 1000 MG, 1 IN1 TOTAL
     Route: 041
     Dates: start: 20150513, end: 20150513
  2. ENALAPRIL ACTAVIS [Concomitant]
     Active Substance: ENALAPRIL
     Dosage: 10 MG
     Route: 065
  3. MIRENA [Concomitant]
     Active Substance: LEVONORGESTREL
     Dosage: 500 MG
     Route: 065
  4. OMEPRAZOL ACTAVIS [Concomitant]
     Active Substance: OMEPRAZOLE
     Dosage: 20 MG
     Route: 065
  5. BEHAPAN [Concomitant]
     Dosage: 1 MILLIGRAM/MILLILITERS
     Route: 065
  6. METOPROLOL ORION [Concomitant]
     Active Substance: METOPROLOL
     Dosage: 50 MG
     Route: 065
  7. NAPROXEN MYLAN [Concomitant]
     Active Substance: NAPROXEN
     Dosage: 500 MG
     Route: 065
  8. DUROFERON [Concomitant]
     Active Substance: FERROUS SULFATE\FERROUS SULFATE, DRIED
     Dosage: 100 MG
     Route: 065

REACTIONS (5)
  - Cough [Recovered/Resolved]
  - Dyspnoea [Recovered/Resolved]
  - Nasal congestion [Recovered/Resolved]
  - Obstructive airways disorder [Recovered/Resolved]
  - Secretion discharge [Recovered/Resolved]

NARRATIVE: CASE EVENT DATE: 20150513
